FAERS Safety Report 4671130-4 (Version None)
Quarter: 2005Q2

REPORT INFORMATION
  Report Type: 
  Country: None (occurrence: None)
  Receive Date: 20050523
  Receipt Date: 20050512
  Transmission Date: 20051028
  Serious: Yes (Other)
  Sender: FDA-Public Use
  Company Number: DE-2005-002765

PATIENT
  Age: 33 Year
  Sex: Female

DRUGS (2)
  1. MIRENA [Suspect]
     Dosage: 20 UG/DAY INTRA-UTERINE
     Route: 015
     Dates: start: 20010101
  2. VOLTAREN [Concomitant]

REACTIONS (6)
  - ARTHRALGIA [None]
  - ARTHRITIS [None]
  - INFLAMMATION [None]
  - JOINT SWELLING [None]
  - LIGAMENT INJURY [None]
  - MUSCULOSKELETAL STIFFNESS [None]
